FAERS Safety Report 5909244-0 (Version None)
Quarter: 2008Q4

REPORT INFORMATION
  Report Type: 
  Country: None (occurrence: None)
  Receive Date: 20081006
  Receipt Date: 20081001
  Transmission Date: 20090506
  Serious: Yes (Death, Other)
  Sender: FDA-Public Use
  Company Number: PHHY2008JP23154

PATIENT
  Sex: Male

DRUGS (5)
  1. CYCLOSPORINE [Suspect]
     Indication: CORD BLOOD TRANSPLANT THERAPY
  2. METHOTREXATE SODIUM [Concomitant]
     Indication: CORD BLOOD TRANSPLANT THERAPY
  3. HEPARIN [Concomitant]
  4. VITAMIN K TAB [Concomitant]
  5. URSODIOL [Concomitant]

REACTIONS (7)
  - ACUTE GRAFT VERSUS HOST DISEASE IN SKIN [None]
  - BRONCHOPULMONARY ASPERGILLOSIS [None]
  - DIARRHOEA [None]
  - FEBRILE NEUTROPENIA [None]
  - HEPATIC FUNCTION ABNORMAL [None]
  - LEUKAEMIA RECURRENT [None]
  - MUCOUS MEMBRANE DISORDER [None]
